FAERS Safety Report 25895751 (Version 2)
Quarter: 2025Q4

REPORT INFORMATION
  Report Type: Report from Study
  Country: US (occurrence: US)
  Receive Date: 20251008
  Receipt Date: 20251110
  Transmission Date: 20260117
  Serious: Yes (Other)
  Sender: MALLINCKRODT
  Company Number: US-MALLINCKRODT-MNK202506237

PATIENT
  Age: 14 Month
  Sex: Female
  Weight: 11 kg

DRUGS (4)
  1. CORTICOTROPIN [Suspect]
     Active Substance: CORTICOTROPIN
     Indication: Infantile spasms
     Dates: start: 20250926, end: 2025
  2. GABAPENTIN [Concomitant]
     Active Substance: GABAPENTIN
     Dosage: UNK
  3. BACLOFEN [Concomitant]
     Active Substance: BACLOFEN
     Dosage: UNK
  4. TOPIRAMATE [Concomitant]
     Active Substance: TOPIRAMATE
     Dosage: UNK

REACTIONS (1)
  - Hydrocephalus [Unknown]

NARRATIVE: CASE EVENT DATE: 20251001
